FAERS Safety Report 11812949 (Version 2)
Quarter: 2015Q4

REPORT INFORMATION
  Report Type: Spontaneous
  Country: TR (occurrence: TR)
  Receive Date: 20151209
  Receipt Date: 20151214
  Transmission Date: 20160305
  Serious: Yes (Other)
  Sender: FDA-Public Use
  Company Number: TR-ASTRAZENECA-2015SF21240

PATIENT
  Age: 60 Year
  Sex: Male

DRUGS (5)
  1. DOCETAXEL. [Concomitant]
     Active Substance: DOCETAXEL
     Dosage: FOR 8 CYCLES (UNTIL DEC-2012) WAS ADMINISTERED.
  2. CASODEX [Suspect]
     Active Substance: BICALUTAMIDE
     Indication: PROSTATE CANCER
     Route: 048
     Dates: start: 201201
  3. DOCETAXEL. [Concomitant]
     Active Substance: DOCETAXEL
  4. CASODEX [Suspect]
     Active Substance: BICALUTAMIDE
     Indication: PROSTATE CANCER
     Route: 048
  5. ZOLEDRONIC ACID [Concomitant]
     Active Substance: ZOLEDRONIC ACID

REACTIONS (4)
  - Osteosclerosis [Unknown]
  - Malignant neoplasm progression [Recovered/Resolved]
  - Metastasis [Unknown]
  - Arthralgia [Unknown]

NARRATIVE: CASE EVENT DATE: 201206
